FAERS Safety Report 8377176-7 (Version None)
Quarter: 2012Q2

REPORT INFORMATION
  Report Type: 
  Country: None (occurrence: None)
  Receive Date: 20120521
  Receipt Date: 20120509
  Transmission Date: 20120825
  Serious: Yes (Other)
  Sender: FDA-Public Use
  Company Number: 2012MA005931

PATIENT
  Age: 80 Year
  Sex: Male
  Weight: 70.3075 kg

DRUGS (3)
  1. TRIPLE ANTIBIOTIC OINTMENT PLUS (POLYMYXIN B- BACITRACIN-NEOMYCIN-PRAM [Suspect]
     Indication: ACROCHORDON
     Dosage: ;QD;TOP
     Dates: start: 20090101, end: 20120301
  2. SYNTHROID [Concomitant]
  3. WARFARIN SODIUM [Concomitant]

REACTIONS (2)
  - DIZZINESS [None]
  - BALANCE DISORDER [None]
